FAERS Safety Report 5011479-9 (Version None)
Quarter: 2006Q2

REPORT INFORMATION
  Report Type: 
  Country: None (occurrence: None)
  Receive Date: 20060525
  Receipt Date: 20060523
  Transmission Date: 20061013
  Serious: Yes (Other)
  Sender: FDA-Public Use
  Company Number: GB-MERCK-0605GBR00119

PATIENT
  Age: 63 Year
  Sex: Female
  Weight: 60 kg

DRUGS (3)
  1. ZETIA [Suspect]
     Indication: TRANSIENT ISCHAEMIC ATTACK
     Route: 048
     Dates: start: 20060314, end: 20060509
  2. RANITIDINE [Concomitant]
     Indication: TRANSIENT ISCHAEMIC ATTACK
     Route: 048
  3. ASPIRIN [Concomitant]
     Indication: TRANSIENT ISCHAEMIC ATTACK
     Route: 048

REACTIONS (2)
  - MYALGIA [None]
  - SYNCOPE [None]
